FAERS Safety Report 8827648 (Version 1)
Quarter: 2012Q4

REPORT INFORMATION
  Report Type: 
  Country: US (occurrence: US)
  Receive Date: 20121008
  Receipt Date: 20121008
  Transmission Date: 20130627
  Serious: No
  Sender: FDA-Public Use
  Company Number: US-PFIZER INC-2012245872

PATIENT
  Age: 57 Year
  Sex: Female
  Weight: 56.69 kg

DRUGS (9)
  1. PROTONIX [Suspect]
     Indication: ABDOMINAL DISCOMFORT
     Dosage: 40 mg, daily
     Dates: start: 2012, end: 2012
  2. NEXIUM [Suspect]
     Indication: GASTRITIS PROPHYLAXIS
     Dosage: 40 mg, daily
  3. EFFIENT [Suspect]
     Indication: CARDIOVASCULAR EVENT PROPHYLAXIS
     Dosage: 10 mg, daily
     Route: 048
     Dates: start: 201205, end: 20120604
  4. PLAVIX [Suspect]
     Indication: ANTICOAGULANT THERAPY
     Dosage: UNK
     Dates: start: 200910
  5. LIPITOR [Concomitant]
     Indication: BLOOD CHOLESTEROL INCREASED
     Dosage: 40 mg, daily
     Route: 048
  6. TRILIPIX [Concomitant]
     Indication: BLOOD TRIGLYCERIDES INCREASED
     Dosage: 135 mg, daily
     Route: 048
  7. COREG [Concomitant]
     Indication: CARDIAC DISORDER
     Dosage: 3.125 mg, 2x/day
     Route: 048
  8. ACETYLSALICYLIC ACID [Concomitant]
     Indication: ANTICOAGULANT THERAPY
     Dosage: 325 mg, alternate day
  9. FIORICET [Concomitant]
     Indication: MIGRAINE
     Dosage: UNK, as needed
     Route: 048

REACTIONS (3)
  - Headache [Recovered/Resolved]
  - Hypersensitivity [Unknown]
  - Rash [Unknown]
